FAERS Safety Report 22612238 (Version 1)
Quarter: 2023Q2

REPORT INFORMATION
  Report Type: Spontaneous
  Country: US (occurrence: None)
  Receive Date: 20230617
  Receipt Date: 20230617
  Transmission Date: 20230722
  Serious: No
  Sender: FDA-Public Use
  Company Number: 2023A140268

PATIENT

DRUGS (1)
  1. XIGDUO XR [Suspect]
     Active Substance: DAPAGLIFLOZIN PROPANEDIOL\METFORMIN HYDROCHLORIDE
     Dosage: 10/1000 MG
     Route: 048

REACTIONS (3)
  - Chest discomfort [Recovered/Resolved]
  - Multiple allergies [Recovered/Resolved]
  - Product taste abnormal [Recovered/Resolved]
